FAERS Safety Report 25129640 (Version 3)
Quarter: 2025Q3

REPORT INFORMATION
  Report Type: Report from Study
  Country: IN (occurrence: IN)
  Receive Date: 20250327
  Receipt Date: 20250829
  Transmission Date: 20251020
  Serious: Yes (Other)
  Sender: NOVARTIS
  Company Number: IN-002147023-NVSC2023IN190667

PATIENT
  Age: 68 Year
  Sex: Female
  Weight: 51 kg

DRUGS (8)
  1. RIBOCICLIB [Suspect]
     Active Substance: RIBOCICLIB
     Indication: Breast cancer metastatic
     Dosage: 600 MG, QD
     Route: 048
     Dates: start: 20190415, end: 202304
  2. RIBOCICLIB [Suspect]
     Active Substance: RIBOCICLIB
     Indication: Hormone receptor positive HER2 negative breast cancer
     Route: 065
     Dates: start: 20230513, end: 20230816
  3. RIBOCICLIB [Suspect]
     Active Substance: RIBOCICLIB
     Dosage: 600 MG, OD DAY 1 TO DAY 21 EVERY 28 DAYS X 3 MONTHS
     Route: 048
  4. RIBOCICLIB [Suspect]
     Active Substance: RIBOCICLIB
     Dosage: 400 MG, (200 MG X 2) PO OD DAY 1 TO DAY 21 EVERY 28 DAYS - X 3 MONTH
     Route: 048
     Dates: start: 202308
  5. RIBOCICLIB [Suspect]
     Active Substance: RIBOCICLIB
     Dosage: 400 MG, QD
     Route: 048
  6. LETROZOLE [Concomitant]
     Active Substance: LETROZOLE
     Indication: Product used for unknown indication
     Dosage: 2.5 MG, OD DAILY TO CONTINUE X 3 MONTH
     Route: 048
  7. DENOSUMAB [Concomitant]
     Active Substance: DENOSUMAB
     Indication: Product used for unknown indication
     Route: 065
  8. Ccm [Concomitant]
     Indication: Product used for unknown indication
     Dosage: 1 DOSAGE FORM, BID  X 3 MONTHS
     Route: 065

REACTIONS (27)
  - Acute hepatitis B [Unknown]
  - Osteonecrosis of jaw [Unknown]
  - Osteomyelitis [Unknown]
  - Pyrexia [Not Recovered/Not Resolved]
  - Liver disorder [Recovering/Resolving]
  - Lymphadenopathy [Unknown]
  - Haemoglobin decreased [Unknown]
  - Red blood cell count decreased [Unknown]
  - Glycosylated haemoglobin increased [Unknown]
  - Laboratory test abnormal [Unknown]
  - Sinusitis [Unknown]
  - Breast calcifications [Unknown]
  - Skin disorder [Unknown]
  - Inflammation [Unknown]
  - Positron emission tomogram abnormal [Unknown]
  - Blood thyroid stimulating hormone abnormal [Unknown]
  - Blood creatinine abnormal [Unknown]
  - Blood uric acid abnormal [Unknown]
  - Blood cholesterol abnormal [Unknown]
  - White blood cell count abnormal [Unknown]
  - Blood urea abnormal [Unknown]
  - Blood pressure systolic increased [Unknown]
  - Blood pressure diastolic decreased [Unknown]
  - Blood albumin abnormal [Unknown]
  - Thyroglobulin present [Unknown]
  - Haemoglobin abnormal [Unknown]
  - Platelet count abnormal [Unknown]

NARRATIVE: CASE EVENT DATE: 20210804
